FAERS Safety Report 11656504 (Version 2)
Quarter: 2015Q4

REPORT INFORMATION
  Report Type: Spontaneous
  Country: US (occurrence: US)
  Receive Date: 20151023
  Receipt Date: 20151208
  Transmission Date: 20160304
  Serious: No
  Sender: FDA-Public Use
  Company Number: US-LUNDBECK-DKLU2004264

PATIENT
  Sex: Female

DRUGS (3)
  1. FLUDROCORTISONE [Concomitant]
     Active Substance: FLUDROCORTISONE
     Indication: PRODUCT USED FOR UNKNOWN INDICATION
     Route: 065
  2. NORTHERA [Suspect]
     Active Substance: DROXIDOPA
     Route: 065
  3. NORTHERA [Suspect]
     Active Substance: DROXIDOPA
     Indication: PRODUCT USED FOR UNKNOWN INDICATION
     Route: 065
     Dates: start: 20150826

REACTIONS (9)
  - Blood pressure decreased [Unknown]
  - Pain in extremity [Unknown]
  - Arthralgia [Unknown]
  - Nasopharyngitis [Unknown]
  - Blood pressure increased [Recovered/Resolved]
  - Joint swelling [Unknown]
  - Headache [Unknown]
  - Drug ineffective [Unknown]
  - Cough [Unknown]
